FAERS Safety Report 4980398-6 (Version None)
Quarter: 2006Q2

REPORT INFORMATION
  Report Type: 
  Country: None (occurrence: None)
  Receive Date: 20060418
  Receipt Date: 20060407
  Transmission Date: 20061013
  Serious: Yes (Other)
  Sender: FDA-Public Use
  Company Number: 2006049019

PATIENT
  Age: 63 Year
  Sex: Male
  Weight: 81.6475 kg

DRUGS (6)
  1. LYRICA [Suspect]
     Indication: NEURALGIA
     Dosage: (75 MG), ORAL
     Route: 048
     Dates: start: 20060318, end: 20060319
  2. OXYCONTIN [Concomitant]
  3. MORPHINE [Concomitant]
  4. SOMA [Concomitant]
  5. ELAVIL [Concomitant]
  6. CELEBREX [Concomitant]

REACTIONS (4)
  - MEMORY IMPAIRMENT [None]
  - SKIN WARM [None]
  - SLEEP WALKING [None]
  - THERMAL BURN [None]
